FAERS Safety Report 8463626-4 (Version None)
Quarter: 2012Q2

REPORT INFORMATION
  Report Type: 
  Country: None (occurrence: None)
  Receive Date: 20120625
  Receipt Date: 20120619
  Transmission Date: 20120825
  Serious: Yes (Hospitalization)
  Sender: FDA-Public Use
  Company Number: IT-PFIZER INC-2012127695

PATIENT
  Age: 76 Year
  Sex: Female

DRUGS (3)
  1. OXYCODONE HYDROCHLORIDE [Concomitant]
     Dosage: 10 MG/5 MG, 6 DOSAGE UNITS
     Route: 048
  2. MEDROL [Concomitant]
     Dosage: 16 MG, 1 DOSAGE UNIT
     Route: 048
  3. LYRICA [Suspect]
     Indication: PAIN
     Dosage: 300 MG, 1X/DAY
     Route: 048
     Dates: start: 20120418, end: 20120517

REACTIONS (1)
  - RHABDOMYOLYSIS [None]
